FAERS Safety Report 21999723 (Version 1)
Quarter: 2023Q1

REPORT INFORMATION
  Report Type: Report from Study
  Country: MX (occurrence: MX)
  Receive Date: 20230216
  Receipt Date: 20230216
  Transmission Date: 20230417
  Serious: Yes (Other)
  Sender: FDA-Public Use
  Company Number: MX-002147023-NVSC2023MX034196

PATIENT
  Age: 17 Year
  Sex: Female
  Weight: 87 kg

DRUGS (5)
  1. MYFORTIC [Suspect]
     Active Substance: MYCOPHENOLATE SODIUM
     Indication: Vasculitis
     Dosage: 1 DOSAGE FORM (360 MG), TID
     Route: 048
     Dates: start: 20230110
  2. RISPERIDONE [Concomitant]
     Active Substance: RISPERIDONE
     Indication: Depression
     Dosage: 1 DOSAGE FORM, QD (175 MG)
     Route: 048
     Dates: start: 202201
  3. RISPERIDONE [Concomitant]
     Active Substance: RISPERIDONE
     Indication: Anxiety
  4. VENLAFAXINE [Concomitant]
     Active Substance: VENLAFAXINE HYDROCHLORIDE
     Indication: Depression
     Dosage: 0.05 DOSAGE FORM, QD (0.5MG)
     Route: 065
     Dates: start: 202201
  5. VENLAFAXINE [Concomitant]
     Active Substance: VENLAFAXINE HYDROCHLORIDE
     Indication: Anxiety

REACTIONS (4)
  - Suicidal ideation [Unknown]
  - Anxiety [Recovered/Resolved]
  - Mood altered [Unknown]
  - Off label use [Unknown]

NARRATIVE: CASE EVENT DATE: 20230203
